APPROVED DRUG PRODUCT: GABAPENTIN
Active Ingredient: GABAPENTIN
Strength: 300MG
Dosage Form/Route: TABLET;ORAL
Application: A218075 | Product #001 | TE Code: AB2
Applicant: ANNORA PHARMA PRIVATE LTD
Approved: Feb 26, 2024 | RLD: No | RS: No | Type: RX